FAERS Safety Report 5149691-0 (Version None)
Quarter: 2006Q4

REPORT INFORMATION
  Report Type: 
  Country: None (occurrence: None)
  Receive Date: 20061113
  Receipt Date: 20060719
  Transmission Date: 20070319
  Serious: No
  Sender: FDA-Public Use
  Company Number: US-GLAXOSMITHKLINE-A0612805A

PATIENT
  Age: 58 Year
  Sex: Female

DRUGS (4)
  1. COREG [Suspect]
     Dosage: 25MG TWICE PER DAY
     Route: 048
     Dates: start: 20040801
  2. NORVASC [Concomitant]
  3. BENICAR [Concomitant]
  4. ZOCOR [Concomitant]

REACTIONS (1)
  - DIZZINESS [None]
